FAERS Safety Report 4520945-1 (Version None)
Quarter: 2004Q4

REPORT INFORMATION
  Report Type: 
  Country: None (occurrence: None)
  Receive Date: 20041206
  Receipt Date: 20041122
  Transmission Date: 20050328
  Serious: Yes (Death, Hospitalization)
  Sender: FDA-Public Use
  Company Number: M2004-1800

PATIENT
  Age: 71 Year
  Sex: Male

DRUGS (5)
  1. ATENOLOL [Suspect]
     Indication: HYPERTENSION
     Dosage: 25 MG ONCE A DAY
  2. LIPITOR [Suspect]
     Indication: HYPERTENSION
     Dosage: 10 MG DAILY
     Dates: start: 20020501
  3. BENDROFLUMETHIAZIDE (BENDROFLUAZIDE) [Concomitant]
  4. GLICAZIDE (GLICAZIDE) [Concomitant]
  5. ASPIRIN [Concomitant]

REACTIONS (2)
  - CIRCULATORY COLLAPSE [None]
  - PANCREATIC CARCINOMA [None]
